FAERS Safety Report 19162842 (Version 3)
Quarter: 2023Q2

REPORT INFORMATION
  Report Type: Spontaneous
  Country: DE (occurrence: DE)
  Receive Date: 20210421
  Receipt Date: 20230606
  Transmission Date: 20230722
  Serious: Yes (Hospitalization, Other)
  Sender: FDA-Public Use
  Company Number: None

PATIENT
  Age: 79 Year
  Sex: Female
  Weight: 58 kg

DRUGS (11)
  1. KEPPRA [Suspect]
     Active Substance: LEVETIRACETAM
     Indication: Product used for unknown indication
     Dosage: 750 MILLIGRAM
  2. LACOSAMIDE [Suspect]
     Active Substance: LACOSAMIDE
     Indication: Product used for unknown indication
     Dosage: 50 MILLIGRAM, 2X/DAY (BID)
  3. OPDIVO [Suspect]
     Active Substance: NIVOLUMAB
     Indication: Malignant melanoma
     Dosage: 57 MILLIGRAM, EV 3 WEEKS
     Route: 042
     Dates: start: 20190201, end: 20190201
  4. OPDIVO [Suspect]
     Active Substance: NIVOLUMAB
     Dosage: 57.5 MILLIGRAM, EV 3 WEEKS
     Route: 042
     Dates: start: 20190301, end: 20190301
  5. OPDIVO [Suspect]
     Active Substance: NIVOLUMAB
     Dosage: 58 MILLIGRAM, EV 3 WEEKS
     Route: 042
     Dates: start: 20190329, end: 20190329
  6. YERVOY [Suspect]
     Active Substance: IPILIMUMAB
     Indication: Malignant melanoma
     Dosage: 174 MILLIGRAM, EV 3 WEEKS
     Route: 042
     Dates: start: 20190201, end: 20190201
  7. YERVOY [Suspect]
     Active Substance: IPILIMUMAB
     Dosage: 172.5 MILLIGRAM, EV 3 WEEKS
     Route: 042
     Dates: start: 20190301, end: 20190301
  8. YERVOY [Suspect]
     Active Substance: IPILIMUMAB
     Dosage: 172.5 MILLIGRAM, EV 3 WEEKS
     Route: 042
     Dates: start: 20190329, end: 20190329
  9. POTASSIUM CHLORIDE [Concomitant]
     Active Substance: POTASSIUM CHLORIDE
     Indication: Product used for unknown indication
     Dosage: UNK
  10. SODIUM CHLORIDE [Concomitant]
     Active Substance: SODIUM CHLORIDE
     Indication: Product used for unknown indication
     Dosage: UNK
  11. MYCOPHENOLATE SODIUM [Concomitant]
     Active Substance: MYCOPHENOLATE SODIUM
     Indication: Product used for unknown indication
     Dosage: UNK

REACTIONS (14)
  - Autoimmune colitis [Unknown]
  - Cognitive disorder [Recovered/Resolved]
  - Diarrhoea [Recovered/Resolved]
  - Fall [Unknown]
  - Seizure [Recovered/Resolved]
  - Hyperthyroidism [Recovering/Resolving]
  - Metastases to central nervous system [Unknown]
  - Pruritus [Recovered/Resolved]
  - Rash [Recovered/Resolved]
  - Fatigue [Recovering/Resolving]
  - Headache [Recovered/Resolved]
  - Muscle spasticity [Recovered/Resolved]
  - Iron deficiency anaemia [Recovering/Resolving]
  - Off label use [Unknown]

NARRATIVE: CASE EVENT DATE: 20190205
